FAERS Safety Report 23693514 (Version 1)
Quarter: 2024Q2

REPORT INFORMATION
  Report Type: Spontaneous
  Country: US (occurrence: US)
  Receive Date: 20240401
  Receipt Date: 20240401
  Transmission Date: 20240716
  Serious: No
  Sender: FDA-Public Use
  Company Number: US-BRISTOL-MYERS SQUIBB COMPANY-2024-051608

PATIENT
  Age: 49 Year
  Sex: Female

DRUGS (1)
  1. LENALIDOMIDE [Suspect]
     Active Substance: LENALIDOMIDE
     Indication: Subacute cutaneous lupus erythematosus
     Dosage: FREQ - 56

REACTIONS (2)
  - Product prescribing issue [Unknown]
  - Off label use [Unknown]
